FAERS Safety Report 15133176 (Version 1)
Quarter: 2018Q3

REPORT INFORMATION
  Report Type: Report from Study
  Country: ES (occurrence: ES)
  Receive Date: 20180712
  Receipt Date: 20180712
  Transmission Date: 20181010
  Serious: Yes (Life-Threatening, Hospitalization, Other)
  Sender: FDA-Public Use
  Company Number: ES-TEVA-2018-ES-924401

PATIENT
  Age: 88 Year
  Sex: Female

DRUGS (6)
  1. LOSARTAN (7157A) [Concomitant]
     Active Substance: LOSARTAN
     Indication: HYPERTENSION
     Dosage: 100 MILLIGRAM DAILY;
     Route: 048
     Dates: start: 20110912
  2. WARFARINA SODICA (3221SO) [Concomitant]
     Active Substance: WARFARIN SODIUM
     Indication: ATRIAL FIBRILLATION
     Route: 048
     Dates: start: 20140627
  3. BISOPROLOL (2328A) [Suspect]
     Active Substance: BISOPROLOL
     Indication: ATRIAL FIBRILLATION
     Dosage: 10 MILLIGRAM DAILY;
     Route: 048
     Dates: end: 20180228
  4. PRAVASTATINA SODICA (7192SO) [Concomitant]
     Active Substance: PRAVASTATIN SODIUM
     Indication: DYSLIPIDAEMIA
     Dosage: 20 MILLIGRAM DAILY;
     Route: 048
  5. FUROSEMIDA (1615A) [Concomitant]
     Active Substance: FUROSEMIDE
     Indication: CARDIAC FAILURE
     Dosage: 40 MILLIGRAM DAILY;
     Route: 048
     Dates: start: 20140514
  6. DIGOXINA (770A) [Interacting]
     Active Substance: DIGOXIN
     Indication: ATRIAL FIBRILLATION
     Dosage: .25 MILLIGRAM DAILY;
     Route: 048
     Dates: start: 20180219, end: 20180228

REACTIONS (3)
  - Toxicity to various agents [Recovered/Resolved]
  - Bradyarrhythmia [Recovered/Resolved]
  - Drug interaction [Unknown]

NARRATIVE: CASE EVENT DATE: 20180228
